FAERS Safety Report 23985075 (Version 1)
Quarter: 2024Q2

REPORT INFORMATION
  Report Type: Spontaneous
  Country: US (occurrence: US)
  Receive Date: 20240618
  Receipt Date: 20240618
  Transmission Date: 20240716
  Serious: No
  Sender: FDA-Public Use
  Company Number: US-IMP-2024000338

PATIENT
  Sex: Female

DRUGS (1)
  1. VEVYE [Suspect]
     Active Substance: CYCLOSPORINE
     Indication: Product used for unknown indication
     Dosage: PRODUCT STARTED ROUGHLY 5-MAY-2024 AND 8-MAY-2024 AND PRODUCT STOPPED 3-4 DAYS AFTER STARTING IT.
     Route: 065
     Dates: start: 202405, end: 202405

REACTIONS (5)
  - Drug hypersensitivity [Unknown]
  - Rhinorrhoea [Unknown]
  - Ocular hyperaemia [Unknown]
  - Eye pain [Unknown]
  - Eye irritation [Unknown]

NARRATIVE: CASE EVENT DATE: 20240501
